FAERS Safety Report 9122160 (Version 4)
Quarter: 2013Q3

REPORT INFORMATION
  Report Type: Spontaneous
  Country: US (occurrence: US)
  Receive Date: 20130114
  Receipt Date: 20130902
  Transmission Date: 20140515
  Serious: No
  Sender: FDA-Public Use
  Company Number: US-BIOGENIDEC-2013BI001252

PATIENT
  Age: 49 Year
  Sex: Male

DRUGS (1)
  1. TYSABRI [Suspect]
     Indication: MULTIPLE SCLEROSIS
     Route: 042
     Dates: start: 20121203, end: 20130606

REACTIONS (13)
  - Feeling abnormal [Not Recovered/Not Resolved]
  - Bladder disorder [Unknown]
  - Gait disturbance [Not Recovered/Not Resolved]
  - Gastrointestinal disorder [Unknown]
  - Coordination abnormal [Recovered/Resolved]
  - Abasia [Not Recovered/Not Resolved]
  - Visual impairment [Not Recovered/Not Resolved]
  - General symptom [Not Recovered/Not Resolved]
  - Multiple sclerosis relapse [Recovered/Resolved]
  - Fatigue [Not Recovered/Not Resolved]
  - Headache [Not Recovered/Not Resolved]
  - Drug ineffective [Not Recovered/Not Resolved]
  - Urinary tract infection [Not Recovered/Not Resolved]
